FAERS Safety Report 10166389 (Version 2)
Quarter: 2014Q2

REPORT INFORMATION
  Report Type: Spontaneous
  Country: IN (occurrence: IN)
  Receive Date: 20140512
  Receipt Date: 20140512
  Transmission Date: 20141212
  Serious: Yes (Death, Other)
  Sender: FDA-Public Use
  Company Number: IN-ACCORD-023524

PATIENT
  Age: 33 Year
  Sex: Female

DRUGS (1)
  1. METHOTREXATE [Suspect]
     Indication: RHEUMATOID ARTHRITIS
     Dosage: TWICE A WEEK FOR 1 MONTH

REACTIONS (7)
  - Mucosal inflammation [Unknown]
  - Hepatotoxicity [Fatal]
  - Anaemia [Unknown]
  - Leukocytosis [Unknown]
  - Thrombocytopenia [Unknown]
  - Pneumonitis [Fatal]
  - Myocarditis [Fatal]
